FAERS Safety Report 9200165 (Version 4)
Quarter: 2013Q3

REPORT INFORMATION
  Report Type: Spontaneous
  Country: JP (occurrence: JP)
  Receive Date: 20130329
  Receipt Date: 20130918
  Transmission Date: 20140515
  Serious: Yes (Hospitalization, Disabling)
  Sender: FDA-Public Use
  Company Number: JP-B.I. PHARMACEUTICALS,INC./RIDGEFIELD-2013-BI-07975NB

PATIENT
  Age: 71 Year
  Sex: Female
  Weight: 45 kg

DRUGS (4)
  1. TRAZENTA [Suspect]
     Indication: DIABETES MELLITUS
     Dosage: 5 MG
     Route: 048
     Dates: start: 20130213, end: 20130305
  2. LASIX [Concomitant]
     Dosage: 20 MG
     Route: 048
  3. TAMBOCOR [Concomitant]
     Dosage: 100 MG
     Route: 048
  4. MAINTATE [Concomitant]
     Dosage: 2.5 MG
     Route: 048

REACTIONS (4)
  - Toxic skin eruption [Recovered/Resolved]
  - Diabetes mellitus [Unknown]
  - Renal impairment [Recovered/Resolved with Sequelae]
  - Hepatic function abnormal [Recovered/Resolved]
